FAERS Safety Report 5716028-5 (Version None)
Quarter: 2008Q2

REPORT INFORMATION
  Report Type: 
  Country: None (occurrence: None)
  Receive Date: 20080422
  Receipt Date: 20080122
  Transmission Date: 20081010
  Serious: No
  Sender: FDA-Public Use
  Company Number: APP200800069

PATIENT
  Age: 49 Year
  Sex: Female
  Weight: 73.0291 kg

DRUGS (12)
  1. HEPARIN SODIUM INJECTION [Suspect]
     Indication: PHLEBITIS
     Dosage: 5000 USP UNITS, 2 IN 12 HR, SUBCUTANEOUS
     Route: 058
     Dates: start: 20080121, end: 20080122
  2. METHADONE HCL [Concomitant]
  3. FLOVENT [Concomitant]
  4. SEREVENT [Concomitant]
  5. NEURONTIN [Concomitant]
  6. CYCLOBENZAPRINE [Concomitant]
  7. PREMARIN [Concomitant]
  8. LISINOPRIL [Concomitant]
  9. DIGOXIN [Concomitant]
  10. PHENERGAN [Concomitant]
  11. INSULIN (INSULIN) [Concomitant]
  12. OXYGEN (OXYGEN) [Concomitant]

REACTIONS (2)
  - INJECTION SITE INJURY [None]
  - INJECTION SITE IRRITATION [None]
